FAERS Safety Report 7752640-X (Version None)
Quarter: 2011Q3

REPORT INFORMATION
  Report Type: 
  Country: None (occurrence: None)
  Receive Date: 20110915
  Receipt Date: 20110906
  Transmission Date: 20111222
  Serious: Yes (Other)
  Sender: FDA-Public Use
  Company Number: US-ROCHE-780866

PATIENT
  Sex: Female
  Weight: 52.2 kg

DRUGS (1)
  1. ACCUTANE [Suspect]
     Indication: ACNE
     Route: 065
     Dates: start: 20000901, end: 20010701

REACTIONS (6)
  - CYSTITIS INTERSTITIAL [None]
  - INFECTIOUS PERITONITIS [None]
  - SELECTIVE IGA IMMUNODEFICIENCY [None]
  - DEPRESSION [None]
  - INJURY [None]
  - IRRITABLE BOWEL SYNDROME [None]
